FAERS Safety Report 25656411 (Version 1)
Quarter: 2025Q3

REPORT INFORMATION
  Report Type: Spontaneous
  Country: US (occurrence: US)
  Receive Date: 20250807
  Receipt Date: 20250807
  Transmission Date: 20251021
  Serious: No
  Sender: SANOFI AVENTIS
  Company Number: US-SA-2025SA230787

PATIENT
  Age: 69 Year
  Sex: Male

DRUGS (1)
  1. DUPIXENT [Suspect]
     Active Substance: DUPILUMAB
     Indication: Aortic dilatation
     Dosage: 300 MG, QOW (RX#2 INJECT 300MG (1 PEN) SUBCUTANEOUSLY EVERY OTHER WEEK STARTING ON DAY 15)
     Route: 058
     Dates: start: 20250720

REACTIONS (2)
  - Incorrect dose administered [Unknown]
  - Product use in unapproved indication [Unknown]

NARRATIVE: CASE EVENT DATE: 20250720
